FAERS Safety Report 14466544 (Version 1)
Quarter: 2018Q1

REPORT INFORMATION
  Report Type: Spontaneous
  Country: IT (occurrence: IT)
  Receive Date: 20180131
  Receipt Date: 20180131
  Transmission Date: 20180509
  Serious: Yes (Other)
  Sender: FDA-Public Use
  Company Number: IT-ALKEM LABORATORIES LIMITED-IT-ALKEM-2018-00259

PATIENT

DRUGS (8)
  1. LINEZOLID. [Suspect]
     Active Substance: LINEZOLID
     Indication: TUBERCULOSIS
     Dosage: 600 MG, UNK
     Route: 065
  2. MEROPENEM. [Concomitant]
     Active Substance: MEROPENEM
     Indication: TUBERCULOSIS
     Dosage: 1 G, TID
     Route: 065
  3. LEVOFLOXACIN. [Concomitant]
     Active Substance: LEVOFLOXACIN
     Indication: TUBERCULOSIS
     Route: 065
  4. AMOXICILLIN/CLAVULANATE [Concomitant]
     Active Substance: AMOXICILLIN\CLAVULANATE POTASSIUM
     Indication: TUBERCULOSIS
     Dosage: 2.2 MG, TID
     Route: 065
  5. RIFABUTIN. [Concomitant]
     Active Substance: RIFABUTIN
     Indication: TUBERCULOSIS
     Dosage: 300 MG, QD
     Route: 065
  6. LINEZOLID. [Suspect]
     Active Substance: LINEZOLID
     Dosage: 600 MG, UNK
     Route: 065
  7. CYCLOSERINE. [Concomitant]
     Active Substance: CYCLOSERINE
     Indication: TUBERCULOSIS
     Dosage: 750 MG, QD
     Route: 065
  8. PROTIONAMIDE [Concomitant]
     Active Substance: PROTIONAMIDE
     Indication: TUBERCULOSIS

REACTIONS (2)
  - Drug resistance [Unknown]
  - Anaemia [Unknown]
